FAERS Safety Report 8542977-9 (Version None)
Quarter: 2012Q3

REPORT INFORMATION
  Report Type: 
  Country: None (occurrence: None)
  Receive Date: 20120716
  Receipt Date: 20120703
  Transmission Date: 20120928
  Serious: Yes (Other)
  Sender: FDA-Public Use
  Company Number: 2012MA008458

PATIENT
  Sex: Female

DRUGS (3)
  1. CO-TENIDONE [Concomitant]
  2. PROPRANOLOL HCL [Suspect]
     Indication: MIGRAINE PROPHYLAXIS
     Dosage: PO
     Route: 048
     Dates: start: 20110101
  3. ATENOLOL [Suspect]
     Indication: MIGRAINE PROPHYLAXIS

REACTIONS (2)
  - PAIN [None]
  - ILL-DEFINED DISORDER [None]
